FAERS Safety Report 6631724-3 (Version None)
Quarter: 2010Q1

REPORT INFORMATION
  Report Type: 
  Country: None (occurrence: None)
  Receive Date: 20100312
  Receipt Date: 20100302
  Transmission Date: 20100710
  Serious: Yes (Life-Threatening, Hospitalization, Other)
  Sender: FDA-Public Use
  Company Number: JP-PFIZER INC-2010020242

PATIENT
  Age: 49 Year
  Sex: Male
  Weight: 60 kg

DRUGS (11)
  1. ZOLOFT [Suspect]
     Indication: IRRITABLE BOWEL SYNDROME
     Dosage: 25 MG/DAY
     Route: 048
     Dates: start: 20090823, end: 20091006
  2. ZOLOFT [Suspect]
     Indication: DEPRESSIVE SYMPTOM
     Dosage: 50 MG/DAY
     Route: 048
     Dates: start: 20091007, end: 20091014
  3. ZOLOFT [Suspect]
     Dosage: 100 MG/DAY
     Dates: start: 20091015, end: 20091126
  4. MEILAX [Concomitant]
     Route: 048
  5. TENORMIN [Concomitant]
     Route: 048
  6. HALCION [Concomitant]
     Route: 048
  7. WARFARIN POTASSIUM [Concomitant]
     Dosage: UNK
     Route: 048
  8. PARIET [Concomitant]
     Dosage: UNK
     Route: 048
  9. GASMOTIN [Concomitant]
     Dosage: UNK
     Route: 048
     Dates: end: 20100107
  10. DEPAS [Concomitant]
     Dosage: UNK
     Route: 048
     Dates: end: 20100121
  11. RAMOSETRON HYDROCHLORIDE [Concomitant]
     Dosage: UNK
     Route: 048
     Dates: start: 20090101

REACTIONS (3)
  - DEPRESSION [None]
  - HEPATITIS [None]
  - IRRITABLE BOWEL SYNDROME [None]
